FAERS Safety Report 23718124 (Version 1)
Quarter: 2024Q2

REPORT INFORMATION
  Report Type: Spontaneous
  Country: JP (occurrence: JP)
  Receive Date: 20240408
  Receipt Date: 20240408
  Transmission Date: 20240716
  Serious: Yes (Hospitalization, Other)
  Sender: FDA-Public Use
  Company Number: JP-VANTIVE-2024BAX014676

PATIENT
  Sex: Male

DRUGS (1)
  1. REGUNEAL LCA [Suspect]
     Active Substance: CALCIUM CHLORIDE\DEXTROSE MONOHYDRATE\HYDROCHLORIC ACID\MAGNESIUM CHLORIDE\SODIUM BICARBONATE\SODIUM
     Indication: Chronic kidney disease
     Dosage: 2 BAGS OF 5.0L PER DAY
     Route: 033
     Dates: start: 20220701

REACTIONS (2)
  - Peritonitis bacterial [Recovering/Resolving]
  - Abdominal pain [Recovering/Resolving]
